FAERS Safety Report 11923204 (Version 1)
Quarter: 2016Q1

REPORT INFORMATION
  Report Type: Report from Study
  Country: US (occurrence: US)
  Receive Date: 20160118
  Receipt Date: 20160118
  Transmission Date: 20160526
  Serious: No
  Sender: FDA-Public Use
  Company Number: US-AMGEN-USASL2016002452

PATIENT
  Age: 67 Year
  Sex: Female

DRUGS (1)
  1. ENBREL [Suspect]
     Active Substance: ETANERCEPT
     Indication: RHEUMATOID ARTHRITIS
     Dosage: 50 MG, ONCE A WEEK
     Route: 065
     Dates: start: 20151204, end: 20160107

REACTIONS (16)
  - Rash macular [Unknown]
  - Pruritus [Not Recovered/Not Resolved]
  - Blister [Unknown]
  - Fatigue [Unknown]
  - Malaise [Unknown]
  - Rash pustular [Unknown]
  - Dysphagia [Unknown]
  - Urticaria [Unknown]
  - Skin wrinkling [Unknown]
  - Skin irritation [Unknown]
  - Hyperhidrosis [Unknown]
  - Chills [Unknown]
  - Feeling abnormal [Unknown]
  - Gastrooesophageal reflux disease [Unknown]
  - Hypersensitivity [Unknown]
  - Skin exfoliation [Unknown]

NARRATIVE: CASE EVENT DATE: 201512
